FAERS Safety Report 9616880 (Version 2)
Quarter: 2013Q4

REPORT INFORMATION
  Report Type: Spontaneous
  Country: IT (occurrence: IT)
  Receive Date: 20131011
  Receipt Date: 20131017
  Transmission Date: 20140711
  Serious: Yes (Death)
  Sender: FDA-Public Use
  Company Number: IT-ASTRAZENECA-2013SE74676

PATIENT
  Age: 40 Year
  Sex: Male

DRUGS (2)
  1. QUETIAPINE [Suspect]
     Indication: PSYCHOTIC DISORDER
     Route: 048
  2. CLOZAPINE [Suspect]
     Indication: PSYCHOTIC DISORDER
     Dosage: 100 MG/ML, 15 DROPS IN THE EVENING

REACTIONS (4)
  - Ileus paralytic [Fatal]
  - Cardiac disorder [Fatal]
  - Electrolyte imbalance [Fatal]
  - Gastrointestinal obstruction [Fatal]
